FAERS Safety Report 5026520-7 (Version None)
Quarter: 2006Q2

REPORT INFORMATION
  Report Type: 
  Country: None (occurrence: None)
  Receive Date: 20060428
  Receipt Date: 20050301
  Transmission Date: 20061013
  Serious: Yes (Hospitalization)
  Sender: FDA-Public Use
  Company Number: MK200503-0038-1

PATIENT
  Sex: Female

DRUGS (7)
  1. RESTORIL [Suspect]
     Indication: SLEEP DISORDER
     Dosage: 15 MG, Q HS, PO
     Route: 048
  2. ABILIFY [Concomitant]
  3. NIASPAN [Concomitant]
  4. LOTENSIN [Concomitant]
  5. ATENOLOL [Concomitant]
  6. COGENTIN [Concomitant]
  7. CLONAZEPINE [Concomitant]

REACTIONS (4)
  - ANOREXIA [None]
  - DIZZINESS [None]
  - MUSCULOSKELETAL STIFFNESS [None]
  - WEIGHT DECREASED [None]
